FAERS Safety Report 5676975-X (Version None)
Quarter: 2008Q1

REPORT INFORMATION
  Report Type: 
  Country: None (occurrence: None)
  Receive Date: 20080324
  Receipt Date: 20080319
  Transmission Date: 20080703
  Serious: Yes (Hospitalization)
  Sender: FDA-Public Use
  Company Number: US-BRISTOL-MYERS SQUIBB COMPANY-14110886

PATIENT
  Age: 62 Year
  Sex: Male
  Weight: 154 kg

DRUGS (15)
  1. DASATINIB [Suspect]
     Indication: SARCOMA
     Route: 048
  2. ADVAIR DISKUS 100/50 [Concomitant]
     Indication: ASTHMA
     Dosage: 1 DOSAGE FORM=250-50MCG, INHALED BY MOUTH.
     Route: 055
  3. ALLEGRA [Concomitant]
     Indication: HYPERSENSITIVITY
     Route: 048
  4. ATIVAN [Concomitant]
     Indication: ANXIETY
     Dosage: ATIVAN 1MG,2 DOSAGE FORM=2 TABLETS.
     Route: 048
  5. COLACE [Concomitant]
     Indication: CONSTIPATION
     Dosage: COLACE 1TAB
     Route: 048
  6. COMBIVENT [Concomitant]
     Indication: ASTHMA
     Dosage: 2 DOSAGE FORM= 2 PUFFS INHALED PO.
     Route: 055
  7. DECADRON [Concomitant]
     Dosage: DECADRON 1 TAB
     Route: 048
  8. POTASSIUM CHLORIDE [Concomitant]
     Indication: DIARRHOEA
     Dosage: KCL SR 10MEQ, TAKE 2 PO, QD.
     Route: 048
  9. LASIX [Concomitant]
     Indication: OEDEMA
     Dosage: LASIX 20MG.
     Route: 048
  10. METOPROLOL TARTRATE [Concomitant]
     Dosage: FORM=TABLETS.
     Route: 048
  11. MULTI-VITAMIN [Concomitant]
  12. NASONEX [Concomitant]
     Indication: HYPERSENSITIVITY
     Dosage: 2 SPRAYS QD, INHALED BY NOSE.
     Route: 055
  13. OXYCODONE HCL [Concomitant]
     Indication: PAIN
     Dosage: 1 TAB Q4-6HRS.
     Route: 048
  14. PERPHENAZINE [Concomitant]
     Indication: NAUSEA
     Dosage: PERPHENAZINE 4MG, TAKE 1 TAB PO FOUR TIMES DAILY.
     Route: 048
  15. SEROQUEL [Concomitant]
     Indication: INSOMNIA
     Dosage: 50MG TAKE 1 TAB PO, HS-PRN.
     Route: 048

REACTIONS (1)
  - DYSPNOEA [None]
